FAERS Safety Report 24176595 (Version 1)
Quarter: 2024Q3

REPORT INFORMATION
  Report Type: Spontaneous
  Country: US (occurrence: US)
  Receive Date: 20240806
  Receipt Date: 20240806
  Transmission Date: 20241017
  Serious: Yes (Other)
  Sender: ABBVIE
  Company Number: US-ABBVIE-5863569

PATIENT

DRUGS (1)
  1. RINVOQ [Suspect]
     Active Substance: UPADACITINIB
     Indication: Product used for unknown indication
     Route: 048
     Dates: start: 20240630

REACTIONS (4)
  - Squamous cell carcinoma of skin [Unknown]
  - Arthropathy [Unknown]
  - Arthritis [Unknown]
  - Spinal disorder [Unknown]

NARRATIVE: CASE EVENT DATE: 20240101
